FAERS Safety Report 6045024-6 (Version None)
Quarter: 2009Q1

REPORT INFORMATION
  Report Type: 
  Country: None (occurrence: None)
  Receive Date: 20090116
  Receipt Date: 20090116
  Transmission Date: 20090719
  Serious: Yes (Other)
  Sender: FDA-Public Use
  Company Number: None

PATIENT
  Age: 32 Year
  Sex: Female
  Weight: 68.0396 kg

DRUGS (4)
  1. EFFEXOR XR [Suspect]
     Indication: ANXIETY
     Dosage: 150MG ONCE DAILY PO
     Route: 048
     Dates: end: 20090109
  2. EFFEXOR XR [Suspect]
     Indication: DEPRESSION
     Dosage: 150MG ONCE DAILY PO
     Route: 048
     Dates: end: 20090109
  3. EFFEXOR XR [Suspect]
     Indication: ANXIETY
     Dosage: 150MG ONCE DAILY PO
     Route: 048
  4. EFFEXOR XR [Suspect]
     Indication: DEPRESSION
     Dosage: 150MG ONCE DAILY PO
     Route: 048

REACTIONS (12)
  - DIARRHOEA [None]
  - EMOTIONAL DISORDER [None]
  - FEELING OF BODY TEMPERATURE CHANGE [None]
  - IRRITABILITY [None]
  - NIGHTMARE [None]
  - PAIN [None]
  - PARAESTHESIA [None]
  - SCREAMING [None]
  - SLEEP DISORDER [None]
  - THEFT [None]
  - VERTIGO [None]
  - WITHDRAWAL SYNDROME [None]
